FAERS Safety Report 7138211 (Version 4)
Quarter: 2012Q4

REPORT INFORMATION
  Report Type: 
  Country: US (occurrence: US)
  Receive Date: 20091002
  Receipt Date: 20121106
  Transmission Date: 20130627
  Serious: Yes (Other)
  Sender: FDA-Public Use
  Company Number: US-ASTRAZENECA-2009UW08335

PATIENT
  Age: 69 Year
  Sex: Female
  Weight: 93.9 kg

DRUGS (9)
  1. NEXIUM [Suspect]
     Route: 048
  2. ARIMIDEX [Suspect]
     Indication: BREAST CANCER
     Route: 048
     Dates: start: 2006
  3. ZOMIG [Suspect]
     Route: 048
  4. PAXIL [Concomitant]
  5. XANAX [Concomitant]
  6. HCTZ [Concomitant]
  7. POTASSIUM [Concomitant]
  8. FLEXERIL [Concomitant]
  9. VICODIN [Concomitant]

REACTIONS (17)
  - Neoplasm malignant [Unknown]
  - Breast cancer [Unknown]
  - Migraine [Unknown]
  - Hot flush [Recovered/Resolved]
  - Joint swelling [Unknown]
  - Salivary gland disorder [Unknown]
  - Weight increased [Unknown]
  - Emotional disorder [Unknown]
  - Gastrooesophageal reflux disease [Unknown]
  - Osteopenia [Unknown]
  - Vomiting [Unknown]
  - Hyperhidrosis [Unknown]
  - Dry mouth [Unknown]
  - Constipation [Unknown]
  - Insomnia [Not Recovered/Not Resolved]
  - Alopecia [Unknown]
  - Intentional drug misuse [Unknown]
